FAERS Safety Report 8314615-1 (Version None)
Quarter: 2012Q2

REPORT INFORMATION
  Report Type: 
  Country: None (occurrence: None)
  Receive Date: 20120426
  Receipt Date: 20120419
  Transmission Date: 20120825
  Serious: Yes (Hospitalization)
  Sender: FDA-Public Use
  Company Number: US-UCBSA-055779

PATIENT
  Age: 27 Year
  Sex: Male

DRUGS (2)
  1. EXCEDRIN (MIGRAINE) [Suspect]
     Indication: HEADACHE
     Dosage: 4 PILLS
     Dates: start: 20111201, end: 20111201
  2. LORTAB [Suspect]
     Indication: HEADACHE
     Dates: start: 20111201, end: 20111201

REACTIONS (7)
  - LOSS OF CONSCIOUSNESS [None]
  - UNRESPONSIVE TO STIMULI [None]
  - RENAL FAILURE [None]
  - FATIGUE [None]
  - RHABDOMYOLYSIS [None]
  - NEUROPATHY PERIPHERAL [None]
  - HEPATITIS TOXIC [None]
